FAERS Safety Report 18867009 (Version 2)
Quarter: 2021Q1

REPORT INFORMATION
  Report Type: Spontaneous
  Country: US (occurrence: US)
  Receive Date: 20210208
  Receipt Date: 20210324
  Transmission Date: 20210420
  Serious: Yes (Hospitalization, Other)
  Sender: FDA-Public Use
  Company Number: US-B.I. PHARMACEUTICALS,INC./RIDGEFIELD-2021-BI-080526

PATIENT
  Age: 57 Year
  Sex: Female

DRUGS (1)
  1. COMBIVENT [Suspect]
     Active Substance: ALBUTEROL SULFATE\IPRATROPIUM BROMIDE
     Indication: CHRONIC OBSTRUCTIVE PULMONARY DISEASE
     Dosage: 1 INHALATION 4 TIMES A DAY AS NEEDED
     Route: 055

REACTIONS (4)
  - Lower limb fracture [Not Recovered/Not Resolved]
  - Hip fracture [Not Recovered/Not Resolved]
  - Arthralgia [Not Recovered/Not Resolved]
  - Foot fracture [Not Recovered/Not Resolved]

NARRATIVE: CASE EVENT DATE: 2020
